FAERS Safety Report 4439507-X (Version None)
Quarter: 2004Q3

REPORT INFORMATION
  Report Type: 
  Country: None (occurrence: None)
  Receive Date: 20040830
  Receipt Date: 20040817
  Transmission Date: 20050211
  Serious: Yes (Life-Threatening, Hospitalization)
  Sender: FDA-Public Use
  Company Number: 2004057298

PATIENT
  Age: 73 Year
  Sex: Female
  Weight: 107 kg

DRUGS (2)
  1. AMLODIPINE [Suspect]
     Indication: INTENTIONAL OVERDOSE
     Dosage: ORAL
     Route: 048
     Dates: start: 20031028
  2. IRBESARTAN (IRBESARTAN) [Concomitant]

REACTIONS (7)
  - ACUTE PULMONARY OEDEMA [None]
  - BRADYCARDIA [None]
  - CARDIAC FAILURE [None]
  - DRUG TOXICITY [None]
  - HAEMODIALYSIS [None]
  - HYPOTENSION [None]
  - RENAL FAILURE ACUTE [None]
